FAERS Safety Report 5128898-2 (Version None)
Quarter: 2006Q4

REPORT INFORMATION
  Report Type: 
  Country: None (occurrence: None)
  Receive Date: 20061017
  Receipt Date: 20060725
  Transmission Date: 20070319
  Serious: No
  Sender: FDA-Public Use
  Company Number: US-GLAXOSMITHKLINE-A0613495A

PATIENT
  Age: 9 Month
  Sex: Male

DRUGS (3)
  1. CEFTIN [Suspect]
     Indication: EAR INFECTION
     Dosage: 250MG TWICE PER DAY
     Route: 048
     Dates: start: 20060724, end: 20060724
  2. IBUPROFEN [Concomitant]
  3. TYLENOL [Concomitant]

REACTIONS (5)
  - ABDOMINAL PAIN [None]
  - ACCIDENTAL OVERDOSE [None]
  - JOINT CONTRACTURE [None]
  - PHARMACEUTICAL PRODUCT COMPLAINT [None]
  - SCREAMING [None]
